FAERS Safety Report 23133589 (Version 1)
Quarter: 2023Q4

REPORT INFORMATION
  Report Type: Spontaneous
  Country: US (occurrence: US)
  Receive Date: 20231101
  Receipt Date: 20231101
  Transmission Date: 20240110
  Serious: No
  Sender: FDA-Public Use
  Company Number: US-BIOVITRUM-2023-US-014836

PATIENT
  Age: 62 Year
  Sex: Female

DRUGS (2)
  1. KINERET [Suspect]
     Active Substance: ANAKINRA
     Indication: Rheumatoid arthritis
     Dosage: DAILY
     Route: 058
     Dates: start: 20220812
  2. KINERET [Suspect]
     Active Substance: ANAKINRA
     Dosage: EVERY OTHER DAY
     Route: 058
     Dates: start: 20220812

REACTIONS (2)
  - Illness [Unknown]
  - Product use issue [Unknown]
